FAERS Safety Report 6631825-X (Version None)
Quarter: 2010Q1

REPORT INFORMATION
  Report Type: 
  Country: None (occurrence: None)
  Receive Date: 20100312
  Receipt Date: 20100303
  Transmission Date: 20100710
  Serious: Yes (Death, Hospitalization)
  Sender: FDA-Public Use
  Company Number: DE-ROCHE-680576

PATIENT
  Sex: Female
  Weight: 100 kg

DRUGS (8)
  1. CAPECITABINE [Suspect]
     Dosage: GIVEN ON DAYS 1-14; TEMPORARILY INTERRUPTED
     Route: 048
     Dates: start: 20100108, end: 20100201
  2. CAPECITABINE [Suspect]
     Dosage: CYCLE 3 AT A REDUCED DOSE.
     Route: 048
     Dates: start: 20100219
  3. DOCETAXEL [Suspect]
     Dosage: FORM: INFUSION; LAST DOSE PRIOR TO SAE: 19 FEB 2010
     Route: 042
     Dates: start: 20100108
  4. DOCETAXEL [Suspect]
     Dosage: CYCLE 3 AT A REDUCED DOSE.
     Route: 042
     Dates: start: 20100219
  5. CISPLATIN [Suspect]
     Dosage: FORM: INFUSION; LAST DOSE PRIOR TO SAE: 19 FEB 2010.
     Route: 042
     Dates: start: 20100108
  6. CISPLATIN [Suspect]
     Dosage: CYCLE 3 AT A REDUCED DOSE.
     Route: 042
     Dates: start: 20100219
  7. METFORMIN [Concomitant]
     Dates: start: 20040101, end: 20100201
  8. BERLTHYROX [Concomitant]
     Dates: start: 19820101, end: 20100201

REACTIONS (2)
  - DEHYDRATION [None]
  - VOMITING [None]
